FAERS Safety Report 5962813-4 (Version None)
Quarter: 2008Q4

REPORT INFORMATION
  Report Type: 
  Country: None (occurrence: None)
  Receive Date: 20081124
  Receipt Date: 20081120
  Transmission Date: 20090506
  Serious: Yes (Hospitalization)
  Sender: FDA-Public Use
  Company Number: US-BRISTOL-MYERS SQUIBB COMPANY-13808118

PATIENT
  Age: 56 Year
  Sex: Female
  Weight: 72 kg

DRUGS (8)
  1. PACLITAXEL [Suspect]
     Indication: PANCREATIC CARCINOMA
     Route: 042
     Dates: start: 20070515, end: 20070515
  2. CARBOPLATIN [Suspect]
     Indication: PANCREATIC CARCINOMA
     Route: 042
     Dates: start: 20070515, end: 20070515
  3. SUTENT [Suspect]
     Indication: PANCREATIC CARCINOMA
     Route: 048
     Dates: start: 20070508, end: 20070523
  4. GLUCOPHAGE [Concomitant]
     Route: 048
     Dates: start: 19980101
  5. ACTOS [Concomitant]
     Route: 048
     Dates: start: 19990101
  6. LANTUS [Concomitant]
     Route: 058
     Dates: start: 20060101
  7. MULTI-VITAMINS [Concomitant]
     Route: 048
     Dates: start: 20000101
  8. HUMALOG [Concomitant]
     Route: 058
     Dates: start: 20060101

REACTIONS (7)
  - FEBRILE NEUTROPENIA [None]
  - HYPONATRAEMIA [None]
  - LEUKOPENIA [None]
  - NEUTROPENIA [None]
  - NEUTROPENIC INFECTION [None]
  - OESOPHAGITIS ULCERATIVE [None]
  - THROMBOCYTOPENIA [None]
